FAERS Safety Report 20029560 (Version 1)
Quarter: 2021Q4

REPORT INFORMATION
  Report Type: Spontaneous
  Country: US (occurrence: US)
  Receive Date: 20211103
  Receipt Date: 20211103
  Transmission Date: 20220303
  Serious: No
  Sender: FDA-Public Use
  Company Number: US-TRIS PHARMA, INC.-21US009934

PATIENT

DRUGS (4)
  1. HYDROCODONE POLISTIREX AND CHLORPHENIRAMINE POLISTIREX [Suspect]
     Active Substance: CHLORPHENIRAMINE MALEATE\HYDROCODONE BITARTRATE
     Indication: Lyme disease
     Dosage: 5 MILLILITRE
     Route: 048
  2. HYDROCODONE POLISTIREX AND CHLORPHENIRAMINE POLISTIREX [Suspect]
     Active Substance: CHLORPHENIRAMINE MALEATE\HYDROCODONE BITARTRATE
     Dosage: UNK MILLILITRE
     Route: 048
  3. HYDROCODONE POLISTIREX AND CHLORPHENIRAMINE POLISTIREX [Concomitant]
     Active Substance: CHLORPHENIRAMINE MALEATE\HYDROCODONE BITARTRATE
     Indication: Lyme disease
  4. COVID-19 VACCINE [Concomitant]
     Indication: COVID-19

REACTIONS (6)
  - Feeling abnormal [Unknown]
  - Off label use [Unknown]
  - Therapeutic product effect increased [Unknown]
  - Illness [Unknown]
  - Liquid product physical issue [Unknown]
  - Product taste abnormal [Unknown]
